FAERS Safety Report 8051382-3 (Version None)
Quarter: 2012Q1

REPORT INFORMATION
  Report Type: 
  Country: None (occurrence: None)
  Receive Date: 20120117
  Receipt Date: 20120116
  Transmission Date: 20120608
  Serious: Yes (Hospitalization)
  Sender: FDA-Public Use
  Company Number: CN-ROCHE-1030718

PATIENT
  Age: 67 Year
  Sex: Female

DRUGS (2)
  1. CHEMOTHERAPY NOS [Concomitant]
     Indication: COLORECTAL CANCER
  2. AVASTIN [Suspect]
     Indication: COLORECTAL CANCER
     Dosage: THE STRENGTH WAS 100MG/4ML
     Route: 041
     Dates: start: 20110825

REACTIONS (3)
  - CONSTIPATION [None]
  - ABDOMINAL PAIN [None]
  - ABDOMINAL DISTENSION [None]
